FAERS Safety Report 17296251 (Version 4)
Quarter: 2020Q1

REPORT INFORMATION
  Report Type: Report from Study
  Country: US (occurrence: US)
  Receive Date: 20200122
  Receipt Date: 20200311
  Transmission Date: 20200409
  Serious: Yes (Other)
  Sender: FDA-Public Use
  Company Number: NVSC2020US014185

PATIENT
  Age: 65 Year
  Sex: Female

DRUGS (2)
  1. GILENYA [Suspect]
     Active Substance: FINGOLIMOD HYDROCHLORIDE
     Dosage: 0.5 MG, QD
     Route: 048
     Dates: start: 20191218
  2. GILENYA [Suspect]
     Active Substance: FINGOLIMOD HYDROCHLORIDE
     Indication: MULTIPLE SCLEROSIS
     Dosage: 0.5 MG, QD
     Route: 048
     Dates: start: 20191118

REACTIONS (10)
  - Lymphocyte count decreased [Unknown]
  - Wrong technique in product usage process [Unknown]
  - Feeling abnormal [Unknown]
  - Speech disorder [Unknown]
  - White blood cell count decreased [Unknown]
  - Eosinophil count increased [Unknown]
  - Contusion [Unknown]
  - Fatigue [Unknown]
  - Pain [Unknown]
  - Mental impairment [Unknown]

NARRATIVE: CASE EVENT DATE: 20200115
